FAERS Safety Report 8111002-6 (Version None)
Quarter: 2012Q1

REPORT INFORMATION
  Report Type: 
  Country: None (occurrence: None)
  Receive Date: 20120203
  Receipt Date: 20110207
  Transmission Date: 20120608
  Serious: No
  Sender: FDA-Public Use
  Company Number: US-GLAXOSMITHKLINE-A0912282A

PATIENT
  Age: 37 Year
  Sex: Female

DRUGS (3)
  1. PAROXETINE HCL [Concomitant]
  2. LAMICTAL [Suspect]
     Indication: BIPOLAR DISORDER
     Dosage: 50MG PER DAY
     Route: 048
     Dates: start: 20090101, end: 20110119
  3. CLONAZEPAM [Concomitant]

REACTIONS (2)
  - RASH PRURITIC [None]
  - RASH PAPULAR [None]
